FAERS Safety Report 23118313 (Version 3)
Quarter: 2025Q1

REPORT INFORMATION
  Report Type: Report from Study
  Country: CA (occurrence: CA)
  Receive Date: 20231028
  Receipt Date: 20250201
  Transmission Date: 20250409
  Serious: Yes (Death)
  Sender: ABBVIE
  Company Number: CA-ABBVIE-5470250

PATIENT
  Age: 74 Year
  Sex: Male

DRUGS (30)
  1. VENETOCLAX [Suspect]
     Active Substance: VENETOCLAX
     Indication: Acute myeloid leukaemia
     Route: 048
     Dates: start: 20231018, end: 20231018
  2. VENETOCLAX [Suspect]
     Active Substance: VENETOCLAX
     Indication: Acute myeloid leukaemia
     Route: 048
     Dates: start: 20231020, end: 20231024
  3. VENETOCLAX [Suspect]
     Active Substance: VENETOCLAX
     Indication: Acute myeloid leukaemia
     Route: 048
     Dates: start: 20231019, end: 20231019
  4. COVID-19 Vaccine mRNA [Concomitant]
     Indication: COVID-19 prophylaxis
     Route: 030
  5. COVID-19 Vaccine mRNA [Concomitant]
     Indication: COVID-19 prophylaxis
     Route: 030
  6. COVID-19 Vaccine mRNA [Concomitant]
     Indication: COVID-19 prophylaxis
     Route: 030
  7. COVID-19 Vaccine mRNA [Concomitant]
     Indication: COVID-19 prophylaxis
     Route: 030
  8. COVID-19 Vaccine mRNA [Concomitant]
     Indication: COVID-19 prophylaxis
     Route: 030
  9. COVID-19 Vaccine mRNA [Concomitant]
     Indication: COVID-19 prophylaxis
     Route: 030
  10. AZACITIDINE [Suspect]
     Active Substance: AZACITIDINE
     Indication: Product used for unknown indication
     Route: 065
     Dates: start: 20231018, end: 20231023
  11. RASBURICASE [Concomitant]
     Active Substance: RASBURICASE
     Indication: Tumour lysis syndrome
  12. ALOPURINOL HF [Concomitant]
     Indication: Tumour lysis syndrome
  13. PIPERACILLIN [Concomitant]
     Active Substance: PIPERACILLIN
     Indication: Sepsis
  14. CEFTOLOZANE SULFATE\TAZOBACTAM SODIUM [Concomitant]
     Active Substance: CEFTOLOZANE SULFATE\TAZOBACTAM SODIUM
     Indication: Sepsis
  15. Zopiclone ab [Concomitant]
     Indication: Insomnia
  16. MAGNESIUM SULFATE [Concomitant]
     Active Substance: MAGNESIUM SULFATE
     Indication: Hypomagnesaemia
     Dates: start: 20241021, end: 20241025
  17. PHYTONADIONE [Concomitant]
     Active Substance: PHYTONADIONE
     Indication: Disseminated intravascular coagulation
  18. TRANEXAMIC ACIDE [Concomitant]
     Indication: Haemorrhage prophylaxis
  19. MAGNESIUM [Concomitant]
     Active Substance: MAGNESIUM
     Indication: Hypomagnesaemia
  20. ONDANSETRON [Concomitant]
     Active Substance: ONDANSETRON
     Indication: Prophylaxis of nausea and vomiting
  21. VITAMIN K [Concomitant]
     Active Substance: PHYTONADIONE
     Indication: Disseminated intravascular coagulation
  22. POLYETHYLENE GLYCOL [Concomitant]
     Active Substance: POLYETHYLENE GLYCOL
     Indication: Constipation
  23. ALUMINUM HYDROXIDE [Concomitant]
     Active Substance: ALUMINUM HYDROXIDE
     Indication: Gastrooesophageal reflux disease
  24. Bisoprolo [Concomitant]
     Indication: Hypertension
  25. IMODIUM [Concomitant]
     Active Substance: LOPERAMIDE HYDROCHLORIDE
     Indication: Diarrhoea
  26. CEPACOL THROAT LOZENGES [Concomitant]
     Indication: Cough
  27. FUROSEMIDE [Concomitant]
     Active Substance: FUROSEMIDE
     Indication: Dyspnoea
  28. DIMENHYDRINATE [Concomitant]
     Active Substance: DIMENHYDRINATE
     Indication: Nausea
  29. HYDROMORPHONE [Concomitant]
     Active Substance: HYDROMORPHONE
     Indication: Pain
  30. LORAZEPAM [Concomitant]
     Active Substance: LORAZEPAM
     Indication: Anxiety

REACTIONS (1)
  - Atrial fibrillation [Fatal]

NARRATIVE: CASE EVENT DATE: 20231025
